FAERS Safety Report 6684988-4 (Version None)
Quarter: 2010Q2

REPORT INFORMATION
  Report Type: 
  Country: None (occurrence: None)
  Receive Date: 20100416
  Receipt Date: 20100408
  Transmission Date: 20101027
  Serious: Yes (Other)
  Sender: FDA-Public Use
  Company Number: FR-AMGEN-QUU404441

PATIENT

DRUGS (4)
  1. NEUPOGEN [Suspect]
     Indication: CHEMOTHERAPY
  2. TAXOL [Concomitant]
  3. CARBOPLATIN [Concomitant]
  4. ERBITUX [Concomitant]

REACTIONS (3)
  - AGRANULOCYTOSIS [None]
  - PYOPNEUMOTHORAX [None]
  - WHITE BLOOD CELL COUNT DECREASED [None]
